FAERS Safety Report 23647259 (Version 1)
Quarter: 2024Q1

REPORT INFORMATION
  Report Type: Spontaneous
  Country: US (occurrence: US)
  Receive Date: 20240319
  Receipt Date: 20240319
  Transmission Date: 20240410
  Serious: Yes (Disabling, Other)
  Sender: FDA-Public Use
  Company Number: US-CHEPLA-2024003368

PATIENT
  Sex: Female

DRUGS (3)
  1. OLANZAPINE [Suspect]
     Active Substance: OLANZAPINE
     Indication: Mania
     Dosage: MATERIAL NUMBER: TA4757. STARTED ZYPREXA IN 1990^S
  2. MOUNJARO [Suspect]
     Active Substance: TIRZEPATIDE
     Indication: Tinnitus
     Dosage: 15MG/0.5ML PEN. MATERIAL NUMBER: PS1457
  3. MOUNJARO [Suspect]
     Active Substance: TIRZEPATIDE
     Indication: Mania
     Dosage: 15MG/0.5ML PEN. MATERIAL NUMBER: PS1457

REACTIONS (6)
  - Disability [Unknown]
  - Diabetes mellitus [Not Recovered/Not Resolved]
  - Treatment noncompliance [Unknown]
  - Hepatic steatosis [Unknown]
  - Coronary artery bypass [Unknown]
  - Cardiac disorder [Unknown]

NARRATIVE: CASE EVENT DATE: 20110101
